FAERS Safety Report 10097221 (Version 4)
Quarter: 2014Q3

REPORT INFORMATION
  Report Type: Spontaneous
  Country: US (occurrence: US)
  Receive Date: 20140422
  Receipt Date: 20140703
  Transmission Date: 20150326
  Serious: No
  Sender: FDA-Public Use
  Company Number: US-009507513-1404USA010819

PATIENT
  Sex: Female
  Weight: 63.95 kg

DRUGS (1)
  1. NEXPLANON [Suspect]
     Active Substance: ETONOGESTREL
     Dosage: UNK
     Route: 059
     Dates: start: 20140307

REACTIONS (2)
  - No adverse event [Unknown]
  - Device dislocation [Unknown]

NARRATIVE: CASE EVENT DATE: 2014
